FAERS Safety Report 7998721-7 (Version None)
Quarter: 2011Q4

REPORT INFORMATION
  Report Type: 
  Country: None (occurrence: None)
  Receive Date: 20111221
  Receipt Date: 20111213
  Transmission Date: 20120403
  Serious: Yes (Hospitalization)
  Sender: FDA-Public Use
  Company Number: US-BAYER-2011-065394

PATIENT
  Age: 31 Year
  Sex: Female
  Weight: 72.562 kg

DRUGS (3)
  1. YAZ [Suspect]
     Indication: PREMENSTRUAL SYNDROME
     Dosage: UNK
     Dates: start: 20030101, end: 20090704
  2. NAPROXEN (ALEVE) [Concomitant]
     Indication: HEADACHE
     Dosage: UNK
     Route: 048
     Dates: start: 20090101
  3. YAZ [Suspect]
     Indication: DYSMENORRHOEA

REACTIONS (7)
  - PULMONARY INFARCTION [None]
  - ANXIETY [None]
  - PNEUMOTHORAX [None]
  - INJURY [None]
  - FEAR [None]
  - PULMONARY EMBOLISM [None]
  - EMOTIONAL DISTRESS [None]
